FAERS Safety Report 23266385 (Version 1)
Quarter: 2023Q4

REPORT INFORMATION
  Report Type: Spontaneous
  Country: JP (occurrence: JP)
  Receive Date: 20231206
  Receipt Date: 20231206
  Transmission Date: 20240110
  Serious: Yes (Other)
  Sender: FDA-Public Use
  Company Number: JP-BEH-2023166013

PATIENT
  Sex: Male

DRUGS (8)
  1. IDELVION [Suspect]
     Active Substance: COAGULATION FACTOR IX RECOMBINANT HUMAN
     Indication: Haemorrhage prophylaxis
     Dosage: 2000 INTERNATIONAL UNIT, EVERY 10 DAYS (40 INTERNATIONAL UNIT/KG)
     Route: 065
     Dates: start: 2018
  2. IDELVION [Suspect]
     Active Substance: COAGULATION FACTOR IX RECOMBINANT HUMAN
     Indication: Haemorrhage prophylaxis
     Dosage: 2000 INTERNATIONAL UNIT, EVERY 10 DAYS (40 INTERNATIONAL UNIT/KG)
     Route: 065
     Dates: start: 2018
  3. IDELVION [Suspect]
     Active Substance: COAGULATION FACTOR IX RECOMBINANT HUMAN
     Indication: Haemostasis
     Dosage: UNK, PRN
     Route: 065
  4. IDELVION [Suspect]
     Active Substance: COAGULATION FACTOR IX RECOMBINANT HUMAN
     Indication: Haemostasis
     Dosage: UNK, PRN
     Route: 065
  5. IDELVION [Suspect]
     Active Substance: COAGULATION FACTOR IX RECOMBINANT HUMAN
     Dosage: 2000 INTERNATIONAL UNIT, QW (40 INTERNATIONAL UNIT/KILOGRAM)
     Route: 065
     Dates: start: 2012, end: 2018
  6. IDELVION [Suspect]
     Active Substance: COAGULATION FACTOR IX RECOMBINANT HUMAN
     Dosage: 2000 INTERNATIONAL UNIT, QW (40 INTERNATIONAL UNIT/KILOGRAM)
     Route: 065
     Dates: start: 2012, end: 2018
  7. IDELVION [Suspect]
     Active Substance: COAGULATION FACTOR IX RECOMBINANT HUMAN
     Dosage: UNK, SINGLE
     Route: 065
  8. IDELVION [Suspect]
     Active Substance: COAGULATION FACTOR IX RECOMBINANT HUMAN
     Dosage: UNK, SINGLE
     Route: 065

REACTIONS (7)
  - Traumatic haemorrhage [Unknown]
  - Haemarthrosis [Unknown]
  - Off label use [Unknown]
  - Haemarthrosis [Unknown]
  - Off label use [Unknown]
  - Haemarthrosis [Unknown]
  - Off label use [Unknown]

NARRATIVE: CASE EVENT DATE: 20190101
